FAERS Safety Report 6144858-7 (Version None)
Quarter: 2009Q2

REPORT INFORMATION
  Report Type: 
  Country: None (occurrence: None)
  Receive Date: 20090401
  Receipt Date: 20090401
  Transmission Date: 20091009
  Serious: Yes (Other)
  Sender: FDA-Public Use
  Company Number: None

PATIENT
  Age: 67 Year
  Sex: Male
  Weight: 101.6057 kg

DRUGS (2)
  1. LEVAQUIN [Suspect]
     Indication: PYREXIA
     Dosage: DAILY IVPB
     Route: 042
  2. LEVAQUIN [Suspect]
     Indication: SEPSIS
     Dosage: DAILY IVPB
     Route: 042

REACTIONS (2)
  - INFUSION SITE RASH [None]
  - PRURITUS [None]
